FAERS Safety Report 13149206 (Version 1)
Quarter: 2017Q1

REPORT INFORMATION
  Report Type: Spontaneous
  Country: IE (occurrence: IE)
  Receive Date: 20170125
  Receipt Date: 20170125
  Transmission Date: 20170428
  Serious: Yes (Other)
  Sender: FDA-Public Use
  Company Number: IE-ALKEM LABORATORIES LIMITED-IE-ALKEM-2017-00015

PATIENT
  Age: 64 Year
  Sex: Female

DRUGS (6)
  1. MINOCYCLINE [Suspect]
     Active Substance: MINOCYCLINE\MINOCYCLINE HYDROCHLORIDE
     Indication: PYODERMA GANGRENOSUM
     Dosage: 100 MG, QD
  2. PREDNISOLONE. [Suspect]
     Active Substance: PREDNISOLONE
     Indication: PYODERMA GANGRENOSUM
     Dosage: 0.6 MG/KG, QD
  3. CICLOSPORIN [Suspect]
     Active Substance: CYCLOSPORINE
     Dosage: BELOW 1MG/KG QD
  4. PREDNISOLONE. [Suspect]
     Active Substance: PREDNISOLONE
     Dosage: 7.5 MG, QD
  5. CICLOSPORIN [Suspect]
     Active Substance: CYCLOSPORINE
     Dosage: 1 MG/KG, QD
  6. CICLOSPORIN [Suspect]
     Active Substance: CYCLOSPORINE
     Indication: PYODERMA GANGRENOSUM
     Dosage: 3 MG/KG, QD

REACTIONS (3)
  - Adrenal suppression [Unknown]
  - Renal impairment [Unknown]
  - Pulmonary embolism [Unknown]
